FAERS Safety Report 6874606-4 (Version None)
Quarter: 2010Q3

REPORT INFORMATION
  Report Type: 
  Country: None (occurrence: None)
  Receive Date: 20100722
  Receipt Date: 20100713
  Transmission Date: 20110219
  Serious: Yes (Hospitalization, Other)
  Sender: FDA-Public Use
  Company Number: 2010MA000794

PATIENT
  Age: 17 Year
  Sex: Male

DRUGS (21)
  1. CARBAMAZEPINE [Suspect]
     Dosage: 1200 MG; QD;
  2. AMISULPRIDE (AMISULPRIDE) [Suspect]
  3. CLOZARIL [Suspect]
     Indication: SCHIZOPHRENIA
  4. ZUCLOPENTHIXOL [Concomitant]
  5. HALOPERIDOL [Concomitant]
  6. DIAZEPAM [Concomitant]
  7. DEPIXOL [Concomitant]
  8. PROCYCLIDINE HYDROCHLORIDE 2MG TAB [Concomitant]
  9. TRIFLUOPERAZINE [Concomitant]
  10. CLOPIXOL DEPOT [Concomitant]
  11. STELAZINE [Concomitant]
  12. ARIPIPRAZOLE [Concomitant]
  13. OMEPRAZOLE [Concomitant]
  14. OLANZAPINE [Concomitant]
  15. RISPERIDONE [Concomitant]
  16. QUETIAPINE [Concomitant]
  17. PIPOTIAZINE [Concomitant]
  18. ACETAMINOPHEN [Concomitant]
  19. FLUPENTIXOL [Concomitant]
  20. PROCYCLIDINE HYDROCHLORIDE 2MG TAB [Concomitant]
  21. SULPIRIDE [Concomitant]

REACTIONS (36)
  - AGGRESSION [None]
  - ALCOHOL USE [None]
  - ANTISOCIAL BEHAVIOUR [None]
  - ANXIETY [None]
  - BODY TEMPERATURE INCREASED [None]
  - CHOLINERGIC SYNDROME [None]
  - COGNITIVE DISORDER [None]
  - DEPRESSION [None]
  - DISEASE RECURRENCE [None]
  - DRUG DOSE OMISSION [None]
  - DRUG RESISTANCE [None]
  - ECHOLALIA [None]
  - EUPHORIC MOOD [None]
  - HALLUCINATION, AUDITORY [None]
  - HOMICIDAL IDEATION [None]
  - HYPERLIPIDAEMIA [None]
  - LACERATION [None]
  - LOSS OF EMPLOYMENT [None]
  - MULTIPLE DRUG OVERDOSE [None]
  - NEGATIVISM [None]
  - NEUTROPENIA [None]
  - OVERDOSE [None]
  - OVERWEIGHT [None]
  - PSYCHOTIC DISORDER [None]
  - RASH [None]
  - RESTLESSNESS [None]
  - SALIVARY GLAND CALCULUS [None]
  - SALIVARY HYPERSECRETION [None]
  - SCHIZOPHRENIA [None]
  - SCHIZOPHRENIA, PARANOID TYPE [None]
  - SEDATION [None]
  - STRESS [None]
  - SUICIDAL IDEATION [None]
  - THEFT [None]
  - TIC [None]
  - TREATMENT NONCOMPLIANCE [None]
